FAERS Safety Report 4719819-2 (Version None)
Quarter: 2005Q3

REPORT INFORMATION
  Report Type: 
  Country: None (occurrence: None)
  Receive Date: 20050721
  Receipt Date: 20041117
  Transmission Date: 20060218
  Serious: No
  Sender: FDA-Public Use
  Company Number: US-GLAXOSMITHKLINE-A0534322A

PATIENT
  Age: 63 Year
  Sex: Female

DRUGS (14)
  1. AVANDIA [Suspect]
     Dosage: 4MG PER DAY
     Route: 048
     Dates: end: 20041116
  2. XANAX [Concomitant]
  3. ANTIVERT [Concomitant]
  4. ATENOLOL [Concomitant]
  5. HYTRIN [Concomitant]
  6. K-DUR 10 [Concomitant]
  7. GLUCOPHAGE [Concomitant]
  8. PROTONIX [Concomitant]
  9. MICARDIS [Concomitant]
  10. DEMADEX [Concomitant]
  11. FLEXERIL [Concomitant]
  12. IMDUR [Concomitant]
  13. ASPIRIN [Concomitant]
  14. TYLENOL [Concomitant]

REACTIONS (2)
  - FATIGUE [None]
  - WEIGHT INCREASED [None]
